FAERS Safety Report 7555581-6 (Version None)
Quarter: 2011Q2

REPORT INFORMATION
  Report Type: 
  Country: None (occurrence: None)
  Receive Date: 20110617
  Receipt Date: 20061215
  Transmission Date: 20111010
  Serious: Yes (Life-Threatening, Hospitalization, Other)
  Sender: FDA-Public Use
  Company Number: PHFR2006GB03439

PATIENT
  Sex: Male
  Weight: 70.3 kg

DRUGS (3)
  1. AMISULPRIDE [Concomitant]
     Indication: SCHIZOPHRENIA
     Dosage: 400 MG, BID
     Route: 048
     Dates: start: 20060904, end: 20061121
  2. PROCYCLIDINE HYDROCHLORIDE 2MG TAB [Concomitant]
     Dosage: 5 MG, PRN
     Route: 048
  3. CLOZAPINE [Suspect]
     Indication: SCHIZOPHRENIA
     Dosage: 1000 MG, BID
     Route: 048
     Dates: start: 20061108, end: 20061121

REACTIONS (19)
  - PYELONEPHRITIS [None]
  - HAEMATURIA [None]
  - INFECTION [None]
  - CONJUNCTIVAL HAEMORRHAGE [None]
  - BODY TEMPERATURE INCREASED [None]
  - BLOOD UREA INCREASED [None]
  - PROTEINURIA [None]
  - URINE PROTEIN/CREATININE RATIO INCREASED [None]
  - LEUKOCYTOSIS [None]
  - BLOOD CREATININE INCREASED [None]
  - DIARRHOEA [None]
  - NEUTROPHIL COUNT INCREASED [None]
  - OEDEMA PERIPHERAL [None]
  - RALES [None]
  - PLEURAL EFFUSION [None]
  - RENAL FAILURE [None]
  - MALAISE [None]
  - COUGH [None]
  - EOSINOPHIL COUNT INCREASED [None]
